FAERS Safety Report 7563828-5 (Version None)
Quarter: 2011Q2

REPORT INFORMATION
  Report Type: 
  Country: None (occurrence: None)
  Receive Date: 20110622
  Receipt Date: 20110608
  Transmission Date: 20111010
  Serious: Yes (Hospitalization)
  Sender: FDA-Public Use
  Company Number: GB-JNJFOC-20110606868

PATIENT
  Sex: Male

DRUGS (6)
  1. NICORETTE [Suspect]
     Route: 048
     Dates: start: 20100101, end: 20100501
  2. NICOTINE [Suspect]
     Indication: PRODUCT USED FOR UNKNOWN INDICATION
     Route: 062
     Dates: start: 20100101, end: 20100101
  3. NICOTINE [Suspect]
     Route: 062
     Dates: start: 20100601
  4. NICORETTE [Suspect]
     Indication: PRODUCT USED FOR UNKNOWN INDICATION
     Route: 048
     Dates: start: 20100601
  5. STATINS [Concomitant]
  6. CLOPIDOGREL [Concomitant]
     Indication: ANTICOAGULANT THERAPY

REACTIONS (6)
  - APPLICATION SITE ERYTHEMA [None]
  - OVERDOSE [None]
  - CEREBROVASCULAR ACCIDENT [None]
  - APPLICATION SITE DISCHARGE [None]
  - MOUTH ULCERATION [None]
  - DRUG INEFFECTIVE [None]
